FAERS Safety Report 25544447 (Version 1)
Quarter: 2025Q3

REPORT INFORMATION
  Report Type: Spontaneous
  Country: US (occurrence: None)
  Receive Date: 20250711
  Receipt Date: 20250711
  Transmission Date: 20251021
  Serious: Yes (Other)
  Sender: FDA-CTU
  Company Number: None

PATIENT
  Sex: Male

DRUGS (9)
  1. LENALIDOMIDE [Suspect]
     Active Substance: LENALIDOMIDE
     Indication: Plasma cell myeloma
     Route: 048
     Dates: start: 20250211
  2. ASPIRIN [Concomitant]
     Active Substance: ASPIRIN
  3. BACTRIM [Concomitant]
     Active Substance: SULFAMETHOXAZOLE\TRIMETHOPRIM
  4. CALCIUM CIT/TAB VIT D [Concomitant]
  5. DARZALEX [Concomitant]
     Active Substance: DARATUMUMAB
  6. DEXAMETHASON POW ACETATE [Concomitant]
  7. NALOXONE SPR [Concomitant]
  8. SENNA [Concomitant]
     Active Substance: SENNOSIDES
  9. VELCADE [Concomitant]
     Active Substance: BORTEZOMIB

REACTIONS (1)
  - Prostate cancer [None]
